FAERS Safety Report 16711217 (Version 1)
Quarter: 2019Q3

REPORT INFORMATION
  Report Type: Spontaneous
  Country: US (occurrence: US)
  Receive Date: 20190816
  Receipt Date: 20190816
  Transmission Date: 20191004
  Serious: Yes (Life-Threatening)
  Sender: FDA-Public Use
  Company Number: None

PATIENT
  Age: 40 Year
  Sex: Female
  Weight: 127 kg

DRUGS (1)
  1. HEPARIN [Suspect]
     Active Substance: HEPARIN SODIUM
     Indication: JUGULAR VEIN THROMBOSIS
     Dosage: ?          OTHER FREQUENCY:CONTINUOUS 1000U/H;?
     Route: 041
     Dates: start: 20190814, end: 20190815

REACTIONS (2)
  - Brain oedema [None]
  - Cerebral haemorrhage [None]

NARRATIVE: CASE EVENT DATE: 20190815
